FAERS Safety Report 24208461 (Version 1)
Quarter: 2024Q3

REPORT INFORMATION
  Report Type: Report from Study
  Country: US (occurrence: US)
  Receive Date: 20240814
  Receipt Date: 20240814
  Transmission Date: 20241017
  Serious: Yes (Hospitalization, Other)
  Sender: ROCHE
  Company Number: US-ROCHE-10000051803

PATIENT
  Age: 33 Year
  Sex: Female
  Weight: 113.4 kg

DRUGS (5)
  1. OCREVUS [Suspect]
     Active Substance: OCRELIZUMAB
     Indication: Relapsing multiple sclerosis
     Dosage: 300 MG SINGLE-USE VIAL
     Route: 042
     Dates: start: 2021
  2. TECFIDERA [Concomitant]
     Active Substance: DIMETHYL FUMARATE
  3. TYLENOL [Concomitant]
     Active Substance: ACETAMINOPHEN
     Indication: Pain
  4. ADVIL [Concomitant]
     Active Substance: IBUPROFEN\IBUPROFEN SODIUM
  5. COVID-19 VACCINE [Concomitant]

REACTIONS (7)
  - Blindness [Not Recovered/Not Resolved]
  - COVID-19 [Recovered/Resolved]
  - Influenza [Recovered/Resolved with Sequelae]
  - Arthritis [Not Recovered/Not Resolved]
  - Fall [Unknown]
  - Ligament sprain [Not Recovered/Not Resolved]
  - Pain [Not Recovered/Not Resolved]

NARRATIVE: CASE EVENT DATE: 20220101
